FAERS Safety Report 4278849-8 (Version None)
Quarter: 2004Q1

REPORT INFORMATION
  Report Type: 
  Country: None (occurrence: None)
  Receive Date: 20040122
  Receipt Date: 20040116
  Transmission Date: 20041129
  Serious: Yes (Death, Hospitalization)
  Sender: FDA-Public Use
  Company Number: 2001-06-0078

PATIENT
  Age: 76 Year
  Sex: Female

DRUGS (8)
  1. THALOMID [Suspect]
     Indication: MYELODYSPLASTIC SYNDROME
     Dosage: 400MG-800MG, QD,ORAL
     Route: 048
     Dates: start: 20010301, end: 20011101
  2. ASACOL [Concomitant]
  3. PRILOSEC [Concomitant]
  4. PREMARIN [Concomitant]
  5. TENORMIN [Concomitant]
  6. POTASSIUM CHLORIDE [Concomitant]
  7. VITAMIN D [Concomitant]
  8. EPOGEN [Concomitant]

REACTIONS (3)
  - DEHYDRATION [None]
  - MOUTH ULCERATION [None]
  - RENAL FAILURE [None]
